FAERS Safety Report 6608691-1 (Version None)
Quarter: 2010Q1

REPORT INFORMATION
  Report Type: 
  Country: None (occurrence: None)
  Receive Date: 20100301
  Receipt Date: 20100219
  Transmission Date: 20100710
  Serious: Yes (Hospitalization)
  Sender: FDA-Public Use
  Company Number: FR-JNJCH-2010004687

PATIENT
  Sex: Male

DRUGS (3)
  1. ACTIFED [Suspect]
     Indication: DRUG USE FOR UNKNOWN INDICATION
     Dosage: TEXT:TWO TABLETS DAILY
     Route: 048
     Dates: start: 20100130, end: 20100201
  2. PREVISCAN [Concomitant]
     Indication: ATRIAL FIBRILLATION
     Dosage: TEXT:UNKNOWN
     Route: 065
  3. SOTALOL [Concomitant]
     Indication: ATRIAL FIBRILLATION
     Dosage: TEXT:UNKNOWN
     Route: 065

REACTIONS (1)
  - SUPRAVENTRICULAR TACHYCARDIA [None]
